FAERS Safety Report 9735677 (Version 2)
Quarter: 2015Q2

REPORT INFORMATION
  Report Type: Report from Study
  Country: US (occurrence: US)
  Receive Date: 20131206
  Receipt Date: 20150410
  Transmission Date: 20150821
  Serious: Yes (Death, Other)
  Sender: FDA-Public Use
  Company Number: US-ASTELLAS-2013US012751

PATIENT
  Age: 81 Year
  Sex: Female

DRUGS (1)
  1. ERLOTINIB [Suspect]
     Active Substance: ERLOTINIB
     Indication: LUNG NEOPLASM MALIGNANT
     Route: 048

REACTIONS (5)
  - Immune system disorder [Fatal]
  - Pneumonia [Fatal]
  - Ear infection [Unknown]
  - Pain [Unknown]
  - Lung neoplasm malignant [Fatal]

NARRATIVE: CASE EVENT DATE: 20131116
